FAERS Safety Report 7444931-7 (Version None)
Quarter: 2011Q2

REPORT INFORMATION
  Report Type: 
  Country: None (occurrence: None)
  Receive Date: 20110429
  Receipt Date: 20110426
  Transmission Date: 20111010
  Serious: Yes (Death, Hospitalization, Other)
  Sender: FDA-Public Use
  Company Number: PHHY2010US36093

PATIENT
  Sex: Male
  Weight: 84 kg

DRUGS (3)
  1. TASIGNA [Suspect]
     Dosage: 200 MG, QD
     Route: 048
     Dates: start: 20100217, end: 20110418
  2. TASIGNA [Suspect]
     Indication: CHRONIC MYELOID LEUKAEMIA
     Dosage: 400 MG, BID
     Route: 048
     Dates: start: 20100215
  3. TASIGNA [Suspect]
     Dosage: 400 MG, BID
     Route: 048

REACTIONS (8)
  - THROMBOCYTOPENIA [None]
  - DEATH [None]
  - ANAEMIA [None]
  - ASTHENIA [None]
  - BLOOD COUNT ABNORMAL [None]
  - DYSPNOEA [None]
  - PANCYTOPENIA [None]
  - SPINAL DISORDER [None]
